FAERS Safety Report 25941819 (Version 1)
Quarter: 2025Q4

REPORT INFORMATION
  Report Type: Spontaneous
  Country: CA (occurrence: CA)
  Receive Date: 20251020
  Receipt Date: 20251020
  Transmission Date: 20260118
  Serious: Yes (Other)
  Sender: PFIZER
  Company Number: CA-PFIZER INC-PV202500123400

PATIENT
  Age: 71 Year
  Sex: Female
  Weight: 105 kg

DRUGS (1)
  1. IXIFI [Suspect]
     Active Substance: INFLIXIMAB-QBTX
     Indication: Colitis ulcerative
     Dosage: 1000 MG
     Route: 042

REACTIONS (3)
  - Cerebrovascular accident [Unknown]
  - Vertigo [Unknown]
  - Dysphagia [Unknown]
